FAERS Safety Report 9921338 (Version 2)
Quarter: 2014Q1

REPORT INFORMATION
  Report Type: Report from Study
  Country: JP (occurrence: JP)
  Receive Date: 20140225
  Receipt Date: 20140228
  Transmission Date: 20141002
  Serious: Yes (Death)
  Sender: FDA-Public Use
  Company Number: JP-JNJFOC-20140214225

PATIENT
  Age: 66 Year
  Sex: Male

DRUGS (7)
  1. FINIBAX [Suspect]
     Indication: CHOLANGITIS
     Route: 065
     Dates: start: 20131126, end: 20131201
  2. FINIBAX [Suspect]
     Indication: CHOLECYSTITIS
     Route: 065
     Dates: start: 20131126, end: 20131201
  3. SOL-MELCORT [Concomitant]
     Indication: PRODUCT USED FOR UNKNOWN INDICATION
     Route: 065
     Dates: start: 20131029, end: 20131031
  4. PREDNISOLONE [Concomitant]
     Indication: PRODUCT USED FOR UNKNOWN INDICATION
     Route: 048
     Dates: start: 20131101
  5. NEORAL [Concomitant]
     Indication: PRODUCT USED FOR UNKNOWN INDICATION
     Route: 048
     Dates: start: 20131101
  6. ELASPOL [Concomitant]
     Indication: PRODUCT USED FOR UNKNOWN INDICATION
     Route: 065
     Dates: start: 20131029, end: 20131111
  7. LEVOFLOXACIN HYDRATE [Concomitant]
     Indication: PRODUCT USED FOR UNKNOWN INDICATION
     Route: 048
     Dates: start: 20131029, end: 20131111

REACTIONS (2)
  - Sepsis [Fatal]
  - Disseminated intravascular coagulation [Fatal]
